FAERS Safety Report 5139385-X (Version None)
Quarter: 2006Q4

REPORT INFORMATION
  Report Type: 
  Country: None (occurrence: None)
  Receive Date: 20061030
  Receipt Date: 20031201
  Transmission Date: 20070319
  Serious: No
  Sender: FDA-Public Use
  Company Number: US-GLAXOSMITHKLINE-A0441478A

PATIENT
  Age: 79 Year
  Sex: Female

DRUGS (13)
  1. SEREVENT [Suspect]
     Indication: CHRONIC OBSTRUCTIVE PULMONARY DISEASE
     Dosage: 1PUFF TWICE PER DAY
     Route: 055
     Dates: start: 20050101
  2. ALBUTEROL [Concomitant]
  3. ATROVENT [Concomitant]
  4. LEVOTHYROXINE SODIUM [Concomitant]
  5. RANITIDINE [Concomitant]
  6. LIPITOR [Concomitant]
  7. MORPHINE [Concomitant]
  8. SINGULAIR [Concomitant]
  9. SPIRIVA [Concomitant]
  10. MUCINEX [Concomitant]
  11. ATIVAN [Concomitant]
  12. SENNOSIDE [Concomitant]
  13. FLONASE [Concomitant]

REACTIONS (4)
  - CHRONIC OBSTRUCTIVE PULMONARY DISEASE [None]
  - DYSPNOEA [None]
  - PHARMACEUTICAL PRODUCT COMPLAINT [None]
  - RESPIRATORY DISORDER [None]
